FAERS Safety Report 8756368 (Version 1)
Quarter: 2012Q4

REPORT INFORMATION
  Report Type: 
  Country: US (occurrence: US)
  Receive Date: 20120828
  Receipt Date: 20120828
  Transmission Date: 20130627
  Serious: Yes (Other)
  Sender: FDA-Public Use
  Company Number: US-JNJFOC-20120808577

PATIENT
  Sex: Male

DRUGS (3)
  1. DURAGESIC [Suspect]
     Indication: FALL
     Route: 062
  2. DURAGESIC [Suspect]
     Indication: FALL
     Route: 062
     Dates: start: 20120813
  3. MS CONTIN [Suspect]
     Indication: FALL
     Route: 048
     Dates: end: 20120813

REACTIONS (12)
  - Catabolic state [Unknown]
  - Weight increased [Not Recovered/Not Resolved]
  - Hypothalamo-pituitary disorder [Unknown]
  - Malaise [Not Recovered/Not Resolved]
  - Therapeutic reaction time decreased [Not Recovered/Not Resolved]
  - Wrong technique in drug usage process [Unknown]
  - Pain [Recovered/Resolved]
  - Product quality issue [Unknown]
  - Disturbance in attention [Unknown]
  - Drug tolerance [Not Recovered/Not Resolved]
  - Application site reaction [Not Recovered/Not Resolved]
  - Application site pruritus [Not Recovered/Not Resolved]
